FAERS Safety Report 12520155 (Version 3)
Quarter: 2016Q3

REPORT INFORMATION
  Report Type: Spontaneous
  Country: IL (occurrence: IL)
  Receive Date: 20160630
  Receipt Date: 20160815
  Transmission Date: 20161109
  Serious: Yes (Death)
  Sender: FDA-Public Use
  Company Number: IL-EISAI MEDICAL RESEARCH-EC-2016-018199

PATIENT
  Age: 58 Year
  Sex: Female

DRUGS (1)
  1. HALAVEN [Suspect]
     Active Substance: ERIBULIN MESYLATE
     Indication: BREAST CANCER METASTATIC
     Dosage: UNKNOWN
     Route: 041
     Dates: start: 20160508, end: 201606

REACTIONS (4)
  - Abdominal pain [Fatal]
  - Malignant neoplasm progression [Fatal]
  - Neutropenia [Fatal]
  - Pyrexia [Fatal]

NARRATIVE: CASE EVENT DATE: 2016
